FAERS Safety Report 24899763 (Version 3)
Quarter: 2025Q2

REPORT INFORMATION
  Report Type: Report from Study
  Country: CA (occurrence: CA)
  Receive Date: 20250129
  Receipt Date: 20250425
  Transmission Date: 20250716
  Serious: Yes (Hospitalization, Other)
  Sender: JOHNSON AND JOHNSON
  Company Number: CA-JNJFOC-20241200166

PATIENT
  Age: 35 Year
  Sex: Female

DRUGS (9)
  1. REMICADE [Suspect]
     Active Substance: INFLIXIMAB
     Indication: Colitis ulcerative
     Route: 041
     Dates: start: 20151023, end: 20241217
  2. camprel [Concomitant]
  3. AMITRIPTYLINE [Concomitant]
     Active Substance: AMITRIPTYLINE
  4. DEXILANT [Concomitant]
     Active Substance: DEXLANSOPRAZOLE
  5. GABAPENTIN [Concomitant]
     Active Substance: GABAPENTIN
  6. DULOXETINE [Concomitant]
     Active Substance: DULOXETINE
  7. ZOPICLONE [Concomitant]
     Active Substance: ZOPICLONE
  8. TORADOL [Concomitant]
     Active Substance: KETOROLAC TROMETHAMINE
  9. PREDNISONE [Concomitant]
     Active Substance: PREDNISONE

REACTIONS (8)
  - Systemic lupus erythematosus [Recovering/Resolving]
  - Anaphylactic reaction [Recovering/Resolving]
  - Urticaria [Recovering/Resolving]
  - Coma [Recovered/Resolved]
  - Renal disorder [Unknown]
  - Gastrointestinal haemorrhage [Unknown]
  - Eye infection [Not Recovered/Not Resolved]
  - Therapy cessation [Unknown]

NARRATIVE: CASE EVENT DATE: 20241101
